FAERS Safety Report 7251229-9 (Version None)
Quarter: 2011Q1

REPORT INFORMATION
  Report Type: 
  Country: None (occurrence: None)
  Receive Date: 20110128
  Receipt Date: 20110119
  Transmission Date: 20110831
  Serious: Yes (Hospitalization, Other)
  Sender: FDA-Public Use
  Company Number: US-MYLANLABS-2011S1000197

PATIENT
  Age: 81 Year
  Sex: Female
  Weight: 61.24 kg

DRUGS (6)
  1. PROPOXYPHENE NAPSYLATE AND ACETAMINOPHEN [Suspect]
     Route: 048
     Dates: start: 20100801, end: 20101225
  2. PROPOXYPHENE NAPSYLATE AND ACETAMINOPHEN [Suspect]
     Indication: PAIN IN EXTREMITY
     Route: 048
     Dates: start: 20100801, end: 20101225
  3. ASA [Concomitant]
     Dates: start: 20100101
  4. PRAVASTATIN [Concomitant]
     Indication: BLOOD CHOLESTEROL INCREASED
     Dates: start: 20100101
  5. SYNTHROID [Concomitant]
     Indication: HYPOTHYROIDISM
     Dates: start: 20080101
  6. OMEPRAZOLE [Concomitant]
     Indication: GASTROOESOPHAGEAL REFLUX DISEASE
     Dates: start: 20100101

REACTIONS (6)
  - VOMITING [None]
  - DIZZINESS [None]
  - SYNCOPE [None]
  - CHEST PAIN [None]
  - NAUSEA [None]
  - BLOOD PRESSURE INCREASED [None]
